FAERS Safety Report 8345161-7 (Version None)
Quarter: 2012Q2

REPORT INFORMATION
  Report Type: 
  Country: None (occurrence: None)
  Receive Date: 20120402
  Receipt Date: 20110906
  Transmission Date: 20120825
  Serious: Yes (Other)
  Sender: FDA-Public Use
  Company Number: 299379USA

PATIENT
  Sex: Female

DRUGS (2)
  1. AMPHETAMINE W/DEXTROAMPHETAMINE [Suspect]
     Dosage: (20 MG)
  2. OBETROL [Concomitant]

REACTIONS (6)
  - PARAESTHESIA ORAL [None]
  - WHEEZING [None]
  - HYPERSENSITIVITY [None]
  - PARAESTHESIA [None]
  - SWELLING FACE [None]
  - ERYTHEMA [None]
